FAERS Safety Report 14901355 (Version 3)
Quarter: 2018Q3

REPORT INFORMATION
  Report Type: Spontaneous
  Country: AR (occurrence: AR)
  Receive Date: 20180516
  Receipt Date: 20180824
  Transmission Date: 20181010
  Serious: Yes (Death, Hospitalization, Other)
  Sender: FDA-Public Use
  Company Number: AR-BAYER-2018-089432

PATIENT
  Age: 49 Year
  Sex: Male

DRUGS (8)
  1. LAMIVUDINE. [Concomitant]
     Active Substance: LAMIVUDINE
  2. STIVARGA [Suspect]
     Active Substance: REGORAFENIB
     Indication: HEPATOCELLULAR CARCINOMA
     Dosage: 160 MG, QD
     Route: 048
     Dates: start: 20170602, end: 2017
  3. STIVARGA [Suspect]
     Active Substance: REGORAFENIB
     Indication: HEPATOCELLULAR CARCINOMA
     Dosage: 40 MG, QD
     Route: 048
     Dates: start: 20170914, end: 20170914
  4. NEXAVAR [Suspect]
     Active Substance: SORAFENIB
     Indication: HEPATOCELLULAR CARCINOMA
     Dosage: 200 MG, QD
     Route: 048
     Dates: start: 2017, end: 20170404
  5. TENOFOVIR DISOPROXIL FUMARATE. [Concomitant]
     Active Substance: TENOFOVIR DISOPROXIL FUMARATE
  6. RITONAVIR. [Concomitant]
     Active Substance: RITONAVIR
  7. NEXAVAR [Suspect]
     Active Substance: SORAFENIB
     Indication: HEPATOCELLULAR CARCINOMA
     Dosage: 400 MG, QD
     Route: 048
     Dates: start: 20170222, end: 201703
  8. DARUNAVIR [Concomitant]
     Active Substance: DARUNAVIR
     Dosage: UNK
     Dates: start: 2007

REACTIONS (24)
  - Metastases to bone [Fatal]
  - Pneumonia pneumococcal [None]
  - Palmar-plantar erythrodysaesthesia syndrome [Recovering/Resolving]
  - Mucosal inflammation [Recovered/Resolved]
  - Drug hypersensitivity [None]
  - Rash [None]
  - Abdominal pain upper [Recovered/Resolved]
  - Diarrhoea [None]
  - Skin atrophy [None]
  - General physical health deterioration [Fatal]
  - General physical health deterioration [None]
  - Transaminases increased [Recovered/Resolved]
  - Alpha 1 foetoprotein increased [None]
  - Metastases to bone [None]
  - Hepatocellular carcinoma [Fatal]
  - Transaminases increased [Recovered/Resolved]
  - Transaminases increased [None]
  - Pyrexia [None]
  - Mucosal inflammation [None]
  - Asthenia [Not Recovered/Not Resolved]
  - Off label use [None]
  - Dyspnoea [None]
  - Transaminases increased [Recovering/Resolving]
  - Spinal pain [None]

NARRATIVE: CASE EVENT DATE: 2017
